FAERS Safety Report 8943475 (Version 1)
Quarter: 2012Q4

REPORT INFORMATION
  Report Type: 
  Country: DE (occurrence: DE)
  Receive Date: 20121203
  Receipt Date: 20121203
  Transmission Date: 20130627
  Serious: Yes (Death)
  Sender: FDA-Public Use
  Company Number: GXKR2012DE003675

PATIENT
  Age: 81 Year
  Sex: Female
  Weight: 72 kg

DRUGS (1)
  1. ALLOPURINOL [Suspect]
     Indication: GOUT
     Dosage: 300 mg, QD
     Route: 048
     Dates: start: 20120503, end: 20120828

REACTIONS (2)
  - Multi-organ failure [Fatal]
  - Exfoliative rash [Fatal]
